FAERS Safety Report 4807504-8 (Version None)
Quarter: 2005Q4

REPORT INFORMATION
  Report Type: 
  Country: None (occurrence: None)
  Receive Date: 20051024
  Receipt Date: 20050816
  Transmission Date: 20060501
  Serious: Yes (Hospitalization)
  Sender: FDA-Public Use
  Company Number: 200512756FR

PATIENT
  Age: 51 Year
  Sex: Female
  Weight: 69 kg

DRUGS (2)
  1. TAXOTERE [Suspect]
     Indication: BREAST CANCER
     Route: 042
     Dates: start: 20050615, end: 20050615
  2. HERCEPTIN [Concomitant]
     Indication: BREAST CANCER
     Route: 042
     Dates: start: 20050614, end: 20050614

REACTIONS (4)
  - ANAEMIA [None]
  - ANAL FISSURE [None]
  - GENERAL PHYSICAL HEALTH DETERIORATION [None]
  - HAEMORRHOIDS [None]
